FAERS Safety Report 6028682-1 (Version None)
Quarter: 2009Q1

REPORT INFORMATION
  Report Type: 
  Country: None (occurrence: None)
  Receive Date: 20090106
  Receipt Date: 20081125
  Transmission Date: 20090719
  Serious: Yes (Hospitalization)
  Sender: FDA-Public Use
  Company Number: DE-ROCHE-579270

PATIENT
  Sex: Male
  Weight: 72.5 kg

DRUGS (29)
  1. METHOXY POLYETHYLENE GLYCOL-EPOETIN BETA [Suspect]
     Dosage: FORM: PFS
     Route: 042
     Dates: start: 20080207
  2. METHOXY POLYETHYLENE GLYCOL-EPOETIN BETA [Suspect]
     Route: 042
     Dates: start: 20080306
  3. METHOXY POLYETHYLENE GLYCOL-EPOETIN BETA [Suspect]
     Route: 042
     Dates: start: 20080410
  4. METHOXY POLYETHYLENE GLYCOL-EPOETIN BETA [Suspect]
     Route: 042
     Dates: start: 20080508
  5. METHOXY POLYETHYLENE GLYCOL-EPOETIN BETA [Suspect]
     Route: 042
     Dates: start: 20080604
  6. METHOXY POLYETHYLENE GLYCOL-EPOETIN BETA [Suspect]
     Dosage: BATCH NUMBER: MH8257603.
     Route: 042
     Dates: start: 20080710
  7. VITARENAL [Concomitant]
     Dates: start: 20040701
  8. PRAVASTATIN SODIUM [Concomitant]
     Dates: start: 20040701
  9. LACTULOSE [Concomitant]
     Dates: start: 20040902, end: 20080703
  10. BISOPROLOL FUMARATE [Concomitant]
     Dates: start: 20040930
  11. ZOPIDONE [Concomitant]
     Dates: start: 20050322
  12. ENALAPRIL MALEATE [Concomitant]
     Dates: start: 20050823
  13. FOSRENOL [Concomitant]
     Dates: start: 20070909
  14. METOCLOPRAMIDE [Concomitant]
     Dates: start: 20071211, end: 20080703
  15. OMEPRAZOLE [Concomitant]
     Dates: start: 20080208, end: 20080703
  16. FOLIC ACID [Concomitant]
     Dates: start: 20040701
  17. VITAMIN B-12 [Concomitant]
     Dates: start: 20040909
  18. CALCITONIN [Concomitant]
     Dates: start: 20060504
  19. PHOSPHORUS [Concomitant]
     Dates: start: 20070802
  20. PAMIFOS [Concomitant]
     Dates: start: 20070823
  21. FERRLECIT [Concomitant]
     Dates: start: 20071206, end: 20080710
  22. FERRLECIT [Concomitant]
     Dates: start: 20080711
  23. CORIFEO [Concomitant]
     Dates: start: 20080303
  24. FENTANYL-100 [Concomitant]
     Dates: start: 20080315
  25. ASPIRIN [Concomitant]
     Dates: start: 20080517, end: 20080527
  26. ASPIRIN [Concomitant]
     Dates: start: 20080703
  27. DOXEPIN HCL [Concomitant]
     Dates: start: 20080320
  28. MIMPARA [Concomitant]
     Dates: start: 20080208
  29. ZEMPLAR [Concomitant]
     Dates: start: 20080307

REACTIONS (2)
  - PERIPHERAL ISCHAEMIA [None]
  - SHUNT THROMBOSIS [None]
